FAERS Safety Report 15731114 (Version 1)
Quarter: 2018Q4

REPORT INFORMATION
  Report Type: Spontaneous
  Country: GB (occurrence: GB)
  Receive Date: 20181217
  Receipt Date: 20181217
  Transmission Date: 20190205
  Serious: Yes (Death, Life-Threatening)
  Sender: FDA-Public Use
  Company Number: GB-SAKK-2018SA340309AA

PATIENT
  Age: 67 Year
  Sex: Male
  Weight: 69.85 kg

DRUGS (7)
  1. TEICOPLANIN [Suspect]
     Active Substance: TEICOPLANIN
     Indication: INFECTION
     Dosage: UNK
     Route: 051
     Dates: start: 20160427, end: 20160508
  2. ENOXAPARIN SODIUM. [Suspect]
     Active Substance: ENOXAPARIN SODIUM
     Dosage: UNK
     Route: 051
     Dates: start: 20160427, end: 20160508
  3. CIPROFLOXACIN HYDROCHLORIDE. [Suspect]
     Active Substance: CIPROFLOXACIN HYDROCHLORIDE
     Indication: INFECTION
     Dosage: 1200 MG, QD
     Route: 051
     Dates: start: 20160427, end: 20160508
  4. PHENYTOIN. [Suspect]
     Active Substance: PHENYTOIN
     Indication: GENERALISED TONIC-CLONIC SEIZURE
     Dosage: UNK
     Route: 051
     Dates: start: 20160427, end: 20160508
  5. SODIUM CHLORIDE. [Concomitant]
     Active Substance: SODIUM CHLORIDE
     Dosage: UNK
     Route: 042
  6. PARACETAMOL [Suspect]
     Active Substance: ACETAMINOPHEN
     Indication: GENERALISED TONIC-CLONIC SEIZURE
     Dosage: 2000 MG, QD
     Route: 051
     Dates: start: 20160427, end: 20160508
  7. LEVETIRACETAM. [Suspect]
     Active Substance: LEVETIRACETAM
     Indication: GENERALISED TONIC-CLONIC SEIZURE
     Dosage: 1500 MG, QD
     Route: 051
     Dates: start: 20160427, end: 20160508

REACTIONS (11)
  - Dysphagia [Fatal]
  - Dyspnoea [Fatal]
  - Crying [Fatal]
  - Depression [Fatal]
  - Tongue coated [Fatal]
  - Abdominal pain [Fatal]
  - Gastrointestinal haemorrhage [Fatal]
  - Anxiety [Fatal]
  - Abdominal distension [Fatal]
  - Melaena [Fatal]
  - Faeces discoloured [Fatal]

NARRATIVE: CASE EVENT DATE: 20160429
